FAERS Safety Report 9999167 (Version 2)
Quarter: 2014Q1

REPORT INFORMATION
  Report Type: Spontaneous
  Country: DE (occurrence: None)
  Receive Date: 20140310
  Receipt Date: 20140328
  Transmission Date: 20141002
  Serious: Yes (Other)
  Sender: FDA-Public Use
  Company Number: 2014030017

PATIENT
  Age: 52 Year
  Sex: Male
  Weight: 72 kg

DRUGS (1)
  1. DYMISTA [Suspect]
     Dosage: 4 DOSAGE FORMS (2 DOSAGE FORMS,2 IN 1 D),IN
     Dates: start: 20140121, end: 20140122

REACTIONS (4)
  - Epistaxis [None]
  - Headache [None]
  - Lip pain [None]
  - Sinus headache [None]
